FAERS Safety Report 20187004 (Version 1)
Quarter: 2021Q4

REPORT INFORMATION
  Report Type: Spontaneous
  Country: US (occurrence: None)
  Receive Date: 20211214
  Receipt Date: 20211214
  Transmission Date: 20220303
  Serious: Yes (Hospitalization)
  Sender: FDA-Public Use
  Company Number: None

PATIENT
  Age: 75 Year
  Sex: Male
  Weight: 88 kg

DRUGS (6)
  1. YESCARTA [Suspect]
     Active Substance: AXICABTAGENE CILOLEUCEL
     Indication: Diffuse large B-cell lymphoma
     Dosage: OTHER FREQUENCY : ONCE;?
     Route: 041
  2. steriods (including taper) [Concomitant]
  3. KEPPRA [Concomitant]
     Active Substance: LEVETIRACETAM
  4. ACTEMRA [Concomitant]
     Active Substance: TOCILIZUMAB
  5. acyclovir (Zovirax) [Concomitant]
  6. anakinra (Kineret) [Concomitant]

REACTIONS (2)
  - Cytokine release syndrome [None]
  - Immune effector cell-associated neurotoxicity syndrome [None]

NARRATIVE: CASE EVENT DATE: 20210928
